FAERS Safety Report 8559779-X (Version None)
Quarter: 2012Q3

REPORT INFORMATION
  Report Type: 
  Country: None (occurrence: None)
  Receive Date: 20120802
  Receipt Date: 20120725
  Transmission Date: 20120928
  Serious: No
  Sender: FDA-Public Use
  Company Number: US-PFIZER INC-2012183950

PATIENT
  Sex: Female
  Weight: 71.202 kg

DRUGS (1)
  1. VORICONAZOLE [Suspect]
     Indication: CANDIDIASIS
     Dosage: 200 MG, 1X/DAY
     Route: 048
     Dates: start: 20120101

REACTIONS (4)
  - NAUSEA [None]
  - DYSPEPSIA [None]
  - FATIGUE [None]
  - PAIN [None]
